FAERS Safety Report 18354509 (Version 3)
Quarter: 2020Q4

REPORT INFORMATION
  Report Type: Spontaneous
  Country: JP (occurrence: JP)
  Receive Date: 20201007
  Receipt Date: 20201209
  Transmission Date: 20210114
  Serious: Yes (Hospitalization, Other)
  Sender: FDA-Public Use
  Company Number: JP-GLAXOSMITHKLINE-JP2020186645

PATIENT
  Age: 17 Year
  Sex: Male

DRUGS (8)
  1. LAMICTAL [Suspect]
     Active Substance: LAMOTRIGINE
     Dosage: 75 MG, QD
     Route: 048
     Dates: start: 20200731, end: 20200813
  2. LAMICTAL [Suspect]
     Active Substance: LAMOTRIGINE
     Dosage: 50 MG, QD
     Route: 048
     Dates: start: 20200717, end: 20200730
  3. LAMICTAL [Suspect]
     Active Substance: LAMOTRIGINE
     Indication: BIPOLAR DISORDER
     Dosage: 12.5 MG, QD
     Route: 048
     Dates: start: 20200620, end: 20200702
  4. RISPERIDONE. [Concomitant]
     Active Substance: RISPERIDONE
     Dosage: 60 MG, SINGLE
     Route: 048
     Dates: start: 20200916
  5. LAMICTAL [Suspect]
     Active Substance: LAMOTRIGINE
     Dosage: 25 MG, QD
     Route: 048
     Dates: start: 20200703, end: 20200716
  6. LAMICTAL [Suspect]
     Active Substance: LAMOTRIGINE
     Dosage: 4900 MG, SINGLE
     Route: 048
     Dates: start: 20200916
  7. LAMICTAL [Suspect]
     Active Substance: LAMOTRIGINE
     Dosage: 100 MG, QD
     Route: 048
     Dates: start: 20200814
  8. RISPERIDONE. [Concomitant]
     Active Substance: RISPERIDONE
     Indication: SCHIZOPHRENIA
     Dosage: 2 MG, 1D
     Route: 048
     Dates: start: 20200620

REACTIONS (6)
  - Product use issue [Unknown]
  - Intentional overdose [Unknown]
  - Intentional self-injury [Unknown]
  - Prescribed underdose [Unknown]
  - Suicide attempt [Recovered/Resolved]
  - Off label use [Unknown]

NARRATIVE: CASE EVENT DATE: 20200620
